FAERS Safety Report 21685396 (Version 1)
Quarter: 2022Q4

REPORT INFORMATION
  Report Type: Spontaneous
  Country: JP (occurrence: JP)
  Receive Date: 20221206
  Receipt Date: 20221206
  Transmission Date: 20230112
  Serious: Yes (Hospitalization)
  Sender: FDA-Public Use
  Company Number: JP-JNJFOC-20220836948

PATIENT
  Age: 87 Year
  Sex: Female
  Weight: 48.4 kg

DRUGS (17)
  1. DARATUMUMAB [Suspect]
     Active Substance: DARATUMUMAB
     Indication: Plasma cell myeloma
     Route: 058
     Dates: start: 20220707, end: 20220707
  2. DARATUMUMAB [Suspect]
     Active Substance: DARATUMUMAB
     Route: 058
     Dates: start: 20220714, end: 20220714
  3. DARATUMUMAB [Suspect]
     Active Substance: DARATUMUMAB
     Route: 058
     Dates: start: 20220721, end: 20220721
  4. DARATUMUMAB [Suspect]
     Active Substance: DARATUMUMAB
     Route: 058
     Dates: start: 20220728, end: 20220728
  5. REVLIMID [Suspect]
     Active Substance: LENALIDOMIDE
     Indication: Plasma cell myeloma
     Route: 048
     Dates: start: 20220707, end: 20220727
  6. REVLIMID [Suspect]
     Active Substance: LENALIDOMIDE
     Route: 048
     Dates: start: 2022
  7. LENADEX [Concomitant]
     Active Substance: DEXAMETHASONE ACETATE
     Indication: Plasma cell myeloma
     Dosage: AFTER BREAKFAST
     Route: 048
     Dates: start: 20220708
  8. LENADEX [Concomitant]
     Active Substance: DEXAMETHASONE ACETATE
     Route: 048
     Dates: start: 2022
  9. NIFEDIPINE [Concomitant]
     Active Substance: NIFEDIPINE
     Dosage: AFTER BREAKFAST
     Route: 048
     Dates: end: 20220729
  10. FUROSEMIDE [Concomitant]
     Active Substance: FUROSEMIDE
     Dosage: AFTER BREAKFAST
     Route: 048
     Dates: end: 20220729
  11. LOSARTAN POTASSIUM [Concomitant]
     Active Substance: LOSARTAN POTASSIUM
     Dosage: AFTER BREAKFAST
     Route: 048
  12. BISOPROLOL FUMARATE [Concomitant]
     Active Substance: BISOPROLOL FUMARATE
     Dosage: AFTER BREAKFAST
     Route: 048
  13. ASPIRIN [Concomitant]
     Active Substance: ASPIRIN
     Dosage: AFTER BREAKFAST
     Route: 048
     Dates: start: 20210718
  14. LANSOPRAZOLE [Concomitant]
     Active Substance: LANSOPRAZOLE
     Dosage: AFTER BREAKFAST
     Route: 048
     Dates: start: 20210718
  15. CALCIUM CARBONATE\CHOLECALCIFEROL\MAGNESIUM CARBONATE [Concomitant]
     Active Substance: CALCIUM CARBONATE\CHOLECALCIFEROL\MAGNESIUM CARBONATE
     Dosage: AFTER BREAKFAST
     Route: 048
     Dates: start: 20210906
  16. CARBOCYSTEINE [Concomitant]
     Active Substance: CARBOCYSTEINE
     Dosage: AFTER BREAKFAST
     Route: 048
     Dates: start: 20211011
  17. DENOSUMAB [Concomitant]
     Active Substance: DENOSUMAB
     Route: 058
     Dates: start: 20210806

REACTIONS (2)
  - Febrile neutropenia [Recovered/Resolved]
  - Septic shock [Recovering/Resolving]

NARRATIVE: CASE EVENT DATE: 20220727
